FAERS Safety Report 9157474 (Version 1)
Quarter: 2013Q1

REPORT INFORMATION
  Report Type: Spontaneous
  Country: US (occurrence: US)
  Receive Date: 20130312
  Receipt Date: 20130312
  Transmission Date: 20140127
  Serious: Yes (Hospitalization)
  Sender: FDA-Public Use
  Company Number: US-PFIZER INC-2013083519

PATIENT
  Age: 73 Year
  Sex: Male

DRUGS (4)
  1. PRISTIQ [Suspect]
     Dosage: 50 MG, 1X/DAY
     Route: 048
  2. TRAZODONE [Concomitant]
     Indication: SLEEP DISORDER
     Dosage: 100 MG, 1X/DAY
     Route: 048
  3. ARICEPT [Concomitant]
     Dosage: 23 MG, 1X/DAY
     Route: 048
  4. CLONAZEPAM [Concomitant]
     Indication: SLEEP DISORDER
     Dosage: 2 MG, AS NEEDED
     Dates: start: 201212, end: 201302

REACTIONS (2)
  - Emotional disorder [Unknown]
  - Wrong technique in drug usage process [Unknown]
